FAERS Safety Report 8959366 (Version 3)
Quarter: 2013Q3

REPORT INFORMATION
  Report Type: Spontaneous
  Country: US (occurrence: US)
  Receive Date: 20121211
  Receipt Date: 20130823
  Transmission Date: 20140515
  Serious: Yes (Hospitalization, Other)
  Sender: FDA-Public Use
  Company Number: US-US-EMD SERONO, INC.-7170604

PATIENT
  Age: 53 Year
  Sex: Female
  Weight: 130 kg

DRUGS (6)
  1. REBIF [Suspect]
     Indication: MULTIPLE SCLEROSIS
     Route: 058
     Dates: start: 20100806
  2. PLAVIX [Concomitant]
     Indication: CARDIOLIPIN ANTIBODY
  3. LYRICA [Concomitant]
     Indication: FIBROMYALGIA
  4. CELEXA                             /00582602/ [Concomitant]
     Indication: DEPRESSION
  5. CELEXA                             /00582602/ [Concomitant]
  6. LEXAPRO [Concomitant]
     Indication: PRODUCT USED FOR UNKNOWN INDICATION

REACTIONS (14)
  - Diabetes mellitus [Recovering/Resolving]
  - Gastric antral vascular ectasia [Recovered/Resolved]
  - Goitre [Not Recovered/Not Resolved]
  - Rectal haemorrhage [Recovered/Resolved]
  - Sinusitis [Unknown]
  - Peroneal nerve palsy [Unknown]
  - Hemiparesis [Unknown]
  - Muscle spasticity [Unknown]
  - Pain in extremity [Unknown]
  - Hepatic enzyme increased [Recovering/Resolving]
  - Anaemia [Not Recovered/Not Resolved]
  - Injection site pain [Unknown]
  - Influenza like illness [Unknown]
  - Injection site bruising [Unknown]
